FAERS Safety Report 4862023-8 (Version None)
Quarter: 2005Q4

REPORT INFORMATION
  Report Type: 
  Country: None (occurrence: None)
  Receive Date: 20051129
  Receipt Date: 20050801
  Transmission Date: 20060501
  Serious: Yes (Hospitalization, Other)
  Sender: FDA-Public Use
  Company Number: US_0411107620

PATIENT
  Age: 42 Year
  Sex: Male
  Weight: 96 kg

DRUGS (27)
  1. ZYPREXA [Suspect]
     Indication: BIPOLAR DISORDER
     Dosage: 40 MG/1 AT BEDTIME
     Dates: start: 19980917, end: 20010315
  2. ZYPREXA [Suspect]
     Indication: SCHIZOAFFECTIVE DISORDER
     Dosage: 40 MG/1 AT BEDTIME
     Dates: start: 19980917, end: 20010315
  3. WELLBUTRIN (BUPROPION HYDROHCLORIDE) [Concomitant]
  4. LITHOBID [Concomitant]
  5. GEMFIBROZIL [Concomitant]
  6. LIPITOR [Concomitant]
  7. NIACIN [Concomitant]
  8. SYNTHORID (LEVOTHYROXINE SODIUM) [Concomitant]
  9. VISTARIL [Concomitant]
  10. ASPIRIN [Concomitant]
  11. METHOCARBAMOL [Concomitant]
  12. AZMACORT (TRIAMCINOLINE ACETONIDE) [Concomitant]
  13. RAMIPRIL [Concomitant]
  14. AVANDIA (ROSIGLITAZOLE MALEATE) [Concomitant]
  15. ZIPRASIDONE [Concomitant]
  16. NEURONTIN [Concomitant]
  17. NOVOLIN 70/30 [Concomitant]
  18. LANSORPRAZOLE [Concomitant]
  19. BENZTROPINE MESYLATE [Concomitant]
  20. DESYREL [Concomitant]
  21. IMIPRAMINE [Concomitant]
  22. REMERON [Concomitant]
  23. CLONAZEPAM [Concomitant]
  24. ESKALITH [Concomitant]
  25. IBUPROFEN [Concomitant]
  26. ACETAMINOPHEN W/HYDROCHLORIDE) [Concomitant]
  27. ZOLOFT [Concomitant]

REACTIONS (10)
  - BLOOD TRIGLYCERIDES INCREASED [None]
  - DIABETES MELLITUS NON-INSULIN-DEPENDENT [None]
  - DIABETIC HYPEROSMOLAR COMA [None]
  - DIABETIC NEUROPATHY [None]
  - DIABETIC RETINOPATHY [None]
  - GLAUCOMA [None]
  - GRAND MAL CONVULSION [None]
  - NEUROPATHY [None]
  - PRESCRIBED OVERDOSE [None]
  - ULCER [None]
